FAERS Safety Report 18980373 (Version 6)
Quarter: 2021Q4

REPORT INFORMATION
  Report Type: Report from Study
  Country: US (occurrence: None)
  Receive Date: 20210308
  Receipt Date: 20211214
  Transmission Date: 20220304
  Serious: Yes (Hospitalization)
  Sender: FDA-Public Use
  Company Number: US-ROCHE-2782786

PATIENT
  Age: 66 Year
  Sex: Female
  Weight: 51.4 kg

DRUGS (16)
  1. COBIMETINIB [Suspect]
     Active Substance: COBIMETINIB
     Indication: Non-small cell lung cancer
     Dosage: ON 17/FEB/2021, SHE RECEIVED LAST DOSE OF COBIMETINIB.?ON 21/FEB/2021, THE DOSE OF COBIMETINIB WAS S
     Route: 048
     Dates: start: 20210210
  2. COBIMETINIB [Suspect]
     Active Substance: COBIMETINIB
     Indication: Neoplasm recurrence
  3. MOTRIN IB [Concomitant]
     Active Substance: IBUPROFEN
  4. ACCUPRIL [Concomitant]
     Active Substance: QUINAPRIL HYDROCHLORIDE
     Indication: Hypertension
     Dates: start: 20200930, end: 20210210
  5. CANNABIS SATIVA SUBSP. INDICA TOP [Concomitant]
     Active Substance: CANNABIS SATIVA SUBSP. INDICA TOP
  6. COLACE [Concomitant]
     Active Substance: DOCUSATE SODIUM
     Indication: Constipation
  7. SENNA CONCENTRATE [Concomitant]
     Active Substance: SENNA CONCENTRATE
     Dates: start: 20201201
  8. LIPITOR [Concomitant]
     Active Substance: ATORVASTATIN CALCIUM
     Indication: Hyperlipidaemia
     Dates: start: 20181101
  9. LEVOTHYROXINE [Concomitant]
     Active Substance: LEVOTHYROXINE
     Indication: Hypothyroidism
     Dates: start: 20200801, end: 20210422
  10. OXYCODONE [Concomitant]
     Active Substance: OXYCODONE
     Indication: Pain
     Dates: start: 20210119, end: 20210217
  11. CODEINE\GUAIFENESIN [Concomitant]
     Active Substance: CODEINE\GUAIFENESIN
     Indication: Cough
     Dates: start: 20210125, end: 20210223
  12. FERROUS SULFATE [Concomitant]
     Active Substance: FERROUS SULFATE
     Indication: Anaemia
     Dosage: DELAYED RELEASE
     Dates: start: 20210125, end: 20210223
  13. ATIVAN [Concomitant]
     Active Substance: LORAZEPAM
     Indication: Anxiety
     Dates: start: 20210204, end: 20210305
  14. BACTRIM DS [Concomitant]
     Active Substance: SULFAMETHOXAZOLE\TRIMETHOPRIM
     Indication: Urinary tract infection
     Dates: start: 20210204, end: 20210208
  15. TESSALON [Concomitant]
     Active Substance: BENZONATATE
     Indication: Cough
     Dates: start: 20210210, end: 20210311
  16. PROCHLORPERAZINE [Concomitant]
     Active Substance: PROCHLORPERAZINE
     Indication: Nausea
     Dates: start: 20210216, end: 20210317

REACTIONS (7)
  - Lethargy [Recovered/Resolved]
  - Pneumonia legionella [Recovered/Resolved]
  - Aspartate aminotransferase increased [Recovered/Resolved]
  - Alanine aminotransferase increased [Recovered/Resolved]
  - Cognitive disorder [Recovered/Resolved]
  - Non-cardiac chest pain [Recovered/Resolved]
  - Platelet count decreased [Recovered/Resolved]

NARRATIVE: CASE EVENT DATE: 20210220
